FAERS Safety Report 5140717-7 (Version None)
Quarter: 2006Q4

REPORT INFORMATION
  Report Type: 
  Country: None (occurrence: None)
  Receive Date: 20061025
  Receipt Date: 20061009
  Transmission Date: 20070319
  Serious: Yes (Hospitalization)
  Sender: FDA-Public Use
  Company Number: 36670

PATIENT
  Age: 70 Year
  Sex: Male

DRUGS (12)
  1. BRINZOLAMIDE 1% SUSPENSION [Suspect]
     Indication: GLAUCOMA
     Route: 047
     Dates: start: 20060103, end: 20060920
  2. AMLODIPINE [Concomitant]
  3. ASPIRIN [Concomitant]
  4. ATORVASTATIN CALCIUM [Concomitant]
  5. BENDROFLUMETHIAZIDE [Concomitant]
  6. EZETIMIBE [Concomitant]
  7. GLYBURIDE [Concomitant]
  8. IRBESARTAN [Concomitant]
  9. DEXAMETHASONE TAB [Concomitant]
  10. METFORMIN [Concomitant]
  11. TIMOLOL MALEATE [Concomitant]
  12. TRAVOPROST [Concomitant]

REACTIONS (5)
  - METABOLIC ACIDOSIS [None]
  - NAUSEA [None]
  - RENAL FAILURE ACUTE [None]
  - RESPIRATORY FAILURE [None]
  - VOMITING [None]
